FAERS Safety Report 6370723-6 (Version None)
Quarter: 2009Q3

REPORT INFORMATION
  Report Type: 
  Country: None (occurrence: None)
  Receive Date: 20090923
  Receipt Date: 20070421
  Transmission Date: 20100115
  Serious: Yes (Other)
  Sender: FDA-Public Use
  Company Number: US-ASTRAZENECA-2006UW25293

PATIENT
  Age: 602 Month
  Sex: Female
  Weight: 111.1 kg

DRUGS (23)
  1. SEROQUEL [Suspect]
     Indication: BIPOLAR DISORDER
     Dosage: 25-1800 MG DISPENSED
     Route: 048
     Dates: start: 20021018
  2. SEROQUEL [Suspect]
     Indication: DEPRESSION
     Dosage: 25-1800 MG DISPENSED
     Route: 048
     Dates: start: 20021018
  3. SEROQUEL [Suspect]
     Dosage: 100-200 MG
     Route: 048
     Dates: start: 20030101
  4. SEROQUEL [Suspect]
     Dosage: 100-200 MG
     Route: 048
     Dates: start: 20030101
  5. PONDIMAN [Concomitant]
     Indication: WEIGHT CONTROL
     Dates: start: 19950101
  6. TRAZODONE [Concomitant]
     Indication: DEPRESSION
     Dosage: 150-200 MG, EVERY DAY
     Dates: start: 19970120
  7. TRAZODONE [Concomitant]
     Indication: ANXIETY
     Dosage: 150-200 MG, EVERY DAY
     Dates: start: 19970120
  8. EFFEXOR [Concomitant]
     Indication: DEPRESSION
     Dates: start: 20040101
  9. HALCION [Concomitant]
     Indication: INSOMNIA
     Dates: start: 20060101
  10. CLONIDINE [Concomitant]
     Indication: HYPERTENSION
     Dates: start: 20040101
  11. MICARDIS [Concomitant]
     Indication: HYPERTENSION
     Route: 048
     Dates: start: 20050101
  12. SYNTHROID [Concomitant]
     Indication: HYPOTHYROIDISM
     Route: 048
     Dates: start: 19780101
  13. LASIX [Concomitant]
     Indication: FLUID RETENTION
     Route: 048
     Dates: start: 20021020
  14. PREMARIN [Concomitant]
     Indication: HORMONE REPLACEMENT THERAPY
     Dosage: 0.9-1.25 MG, QD
     Route: 048
     Dates: start: 20061018
  15. PROMETRIUM [Concomitant]
     Indication: HORMONE REPLACEMENT THERAPY
     Route: 048
     Dates: start: 20050401
  16. PRILOSEC [Concomitant]
     Indication: GASTROOESOPHAGEAL REFLUX DISEASE
     Dosage: 20 MG, 2 TABLETS A DAY
     Route: 048
     Dates: start: 19960624
  17. NEXIUM [Concomitant]
     Route: 048
     Dates: start: 20061018
  18. ZESTRIL [Concomitant]
     Dosage: 10-20 MG, DAILY
  19. ZESTORETIC [Concomitant]
     Dosage: 20/25 MG Q AM
  20. TRILEPTAL [Concomitant]
     Dates: start: 20041001
  21. ATENOLOL [Concomitant]
     Indication: BLOOD PRESSURE
     Dates: start: 20031031
  22. LAMICTAL [Concomitant]
     Dates: start: 20031031
  23. LEXAPRO [Concomitant]

REACTIONS (2)
  - DIABETES MELLITUS [None]
  - PANCREATITIS [None]
